FAERS Safety Report 16769241 (Version 2)
Quarter: 2019Q4

REPORT INFORMATION
  Report Type: Spontaneous
  Country: AU (occurrence: AU)
  Receive Date: 20190903
  Receipt Date: 20191003
  Transmission Date: 20200122
  Serious: Yes (Hospitalization, Other)
  Sender: FDA-Public Use
  Company Number: AU-MYLANLABS-2019M1082202

PATIENT
  Age: 42 Year
  Sex: Male

DRUGS (5)
  1. ATROPINE. [Concomitant]
     Active Substance: ATROPINE
     Dosage: 2 DROP, PM
  2. ARIPIPRAZOLE. [Concomitant]
     Active Substance: ARIPIPRAZOLE
     Dosage: 400 MILLIGRAM, MONTHLY
  3. FENOFIBRATE. [Concomitant]
     Active Substance: FENOFIBRATE
     Dosage: 145 MILLIGRAM, AM
  4. CLOZARIL [Suspect]
     Active Substance: CLOZAPINE
     Indication: SCHIZOAFFECTIVE DISORDER
  5. CLOZARIL [Suspect]
     Active Substance: CLOZAPINE
     Indication: SCHIZOPHRENIA
     Dosage: 200 MILLIGRAM, PM
     Route: 048
     Dates: start: 20190717

REACTIONS (9)
  - Myocardial infarction [Unknown]
  - C-reactive protein increased [Recovered/Resolved]
  - Vision blurred [Unknown]
  - Troponin increased [Recovered/Resolved]
  - Diplopia [Unknown]
  - Constipation [Unknown]
  - Tachycardia [Unknown]
  - Product use in unapproved indication [Unknown]
  - Sedation [Unknown]

NARRATIVE: CASE EVENT DATE: 2019
